FAERS Safety Report 10274079 (Version 2)
Quarter: 2014Q3

REPORT INFORMATION
  Report Type: Spontaneous
  Country: IT (occurrence: IT)
  Receive Date: 20140702
  Receipt Date: 20140909
  Transmission Date: 20150326
  Serious: Yes (Other)
  Sender: FDA-Public Use
  Company Number: IT-BAYER-2014-094642

PATIENT
  Age: 80 Year
  Sex: Male

DRUGS (7)
  1. NEXAVAR [Suspect]
     Active Substance: SORAFENIB
     Indication: HEPATOCELLULAR CARCINOMA
     Dosage: DAILY DOSE 800 MG
     Route: 048
     Dates: start: 20131114
  2. PANTOPRAZOLE [Concomitant]
     Active Substance: PANTOPRAZOLE SODIUM
     Dosage: DAILY DOSE 40 MG
     Route: 048
  3. NEXAVAR [Suspect]
     Active Substance: SORAFENIB
     Indication: HEPATOCELLULAR CARCINOMA
     Dosage: DOSE REDUCED
     Route: 048
  4. URSODEOXYCHOLIC ACID [Concomitant]
     Active Substance: URSODIOL
     Dosage: DAILY DOSE 450 MG
     Route: 048
  5. TRAVATAN [Concomitant]
     Active Substance: TRAVOPROST
     Dosage: DAILY DOSE 1 GTT
     Route: 047
  6. OMNIC [Concomitant]
     Active Substance: TAMSULOSIN HYDROCHLORIDE
     Dosage: DAILY DOSE .4 MG
     Route: 048
  7. QUESTRAN [Concomitant]
     Active Substance: CHOLESTYRAMINE
     Dosage: DAILY DOSE 4 G
     Route: 048

REACTIONS (3)
  - Palmar-plantar erythrodysaesthesia syndrome [Recovering/Resolving]
  - Haemorrhoids [Recovering/Resolving]
  - Asthenia [Recovering/Resolving]

NARRATIVE: CASE EVENT DATE: 20131114
